FAERS Safety Report 18247033 (Version 2)
Quarter: 2020Q4

REPORT INFORMATION
  Report Type: Spontaneous
  Country: FR (occurrence: FR)
  Receive Date: 20200909
  Receipt Date: 20201223
  Transmission Date: 20210113
  Serious: Yes (Disabling)
  Sender: FDA-Public Use
  Company Number: FR-REGENERON PHARMACEUTICALS, INC.-2020-74896

PATIENT

DRUGS (1)
  1. EYLEA [Suspect]
     Active Substance: AFLIBERCEPT
     Indication: MACULAR OEDEMA
     Dosage: 1 DF, Q6WK
     Route: 031
     Dates: start: 201910, end: 20201007

REACTIONS (4)
  - Pruritus [Recovered/Resolved]
  - Myalgia [Recovered/Resolved with Sequelae]
  - Arthralgia [Recovered/Resolved with Sequelae]
  - Joint stiffness [Recovered/Resolved with Sequelae]

NARRATIVE: CASE EVENT DATE: 201911
